FAERS Safety Report 9725715 (Version 1)
Quarter: 2013Q4

REPORT INFORMATION
  Report Type: Spontaneous
  Country: DE (occurrence: DE)
  Receive Date: 20131203
  Receipt Date: 20131203
  Transmission Date: 20140711
  Serious: Yes (Hospitalization, Congenital Anomaly, Other)
  Sender: FDA-Public Use
  Company Number: DE-DRREDDYS-GER/GER/13/0035968

PATIENT
  Age: 1 Day
  Sex: Female
  Weight: 3.21 kg

DRUGS (2)
  1. OMEPRAZOLE [Suspect]
     Indication: PRODUCT USED FOR UNKNOWN INDICATION
     Dosage: FIRST 4 DAYS 20 MG/D, SUBSEQUENTLY 40 MG/D
     Route: 064
     Dates: start: 20090205, end: 20090213
  2. FEMIBION [Concomitant]
     Indication: PRODUCT USED FOR UNKNOWN INDICATION
     Route: 064

REACTIONS (5)
  - Coarctation of the aorta [Recovered/Resolved with Sequelae]
  - Patent ductus arteriosus [Unknown]
  - Atrial septal defect [Unknown]
  - Bicuspid aortic valve [Not Recovered/Not Resolved]
  - Foetal exposure during pregnancy [Unknown]
